FAERS Safety Report 13835469 (Version 1)
Quarter: 2017Q3

REPORT INFORMATION
  Report Type: Spontaneous
  Country: TH (occurrence: TH)
  Receive Date: 20170804
  Receipt Date: 20170804
  Transmission Date: 20171127
  Serious: Yes (Death)
  Sender: FDA-Public Use
  Company Number: TH-ACTELION-A-CH2017-157577

PATIENT
  Sex: Female

DRUGS (11)
  1. TRACLEER [Suspect]
     Active Substance: BOSENTAN
     Indication: PULMONARY ARTERIAL HYPERTENSION
     Dosage: 62.5 MG, BID
     Route: 048
     Dates: end: 2017
  2. COLCHICINE. [Concomitant]
     Active Substance: COLCHICINE
     Dosage: UNK, OD
  3. FESOFOR [Concomitant]
     Active Substance: IRON
     Dosage: UNK, TID
  4. SIMVAS [Concomitant]
     Dosage: 20 MG, QD
  5. ALDACTONE [Concomitant]
     Active Substance: SPIRONOLACTONE
     Dosage: 12.5 MG, QD
  6. ASA [Concomitant]
     Active Substance: ASPIRIN
  7. AMLODIPINE [Concomitant]
     Active Substance: AMLODIPINE BESYLATE
  8. LASIX [Concomitant]
     Active Substance: FUROSEMIDE
  9. FOLIC [Concomitant]
     Active Substance: FOLIC ACID
     Dosage: UNK, OD
  10. SILDENAFIL. [Concomitant]
     Active Substance: SILDENAFIL
     Dosage: 20 MG, TID
  11. LOSEC [Concomitant]
     Active Substance: OMEPRAZOLE
     Dosage: UNK, OD

REACTIONS (2)
  - Cardiac failure congestive [Fatal]
  - Acute respiratory failure [Fatal]
